FAERS Safety Report 6051545-2 (Version None)
Quarter: 2009Q1

REPORT INFORMATION
  Report Type: 
  Country: None (occurrence: None)
  Receive Date: 20090126
  Receipt Date: 20090116
  Transmission Date: 20090719
  Serious: Yes (Hospitalization)
  Sender: FDA-Public Use
  Company Number: A0764984A

PATIENT
  Age: 46 Year
  Sex: Female
  Weight: 72.7 kg

DRUGS (5)
  1. AVANDIA [Suspect]
     Dosage: 8MG PER DAY
     Route: 048
     Dates: start: 20020101, end: 20070624
  2. GLUCOPHAGE [Concomitant]
  3. METFORMIN [Concomitant]
  4. INSULIN [Concomitant]
  5. GLUCOTROL [Concomitant]

REACTIONS (4)
  - ARTERIOSCLEROSIS [None]
  - CORONARY ARTERY DISEASE [None]
  - PAIN [None]
  - TRANSIENT ISCHAEMIC ATTACK [None]
